FAERS Safety Report 19239291 (Version 1)
Quarter: 2021Q2

REPORT INFORMATION
  Report Type: Spontaneous
  Country: CA (occurrence: CA)
  Receive Date: 20210510
  Receipt Date: 20210510
  Transmission Date: 20210717
  Serious: Yes (Other)
  Sender: FDA-Public Use
  Company Number: CA-CELGENEUS-CAN-20210500747

PATIENT
  Sex: Female
  Weight: 52 kg

DRUGS (1)
  1. ABRAXANE [Suspect]
     Active Substance: PACLITAXEL
     Indication: PANCREATIC CARCINOMA METASTATIC
     Dosage: 162 MILLIGRAM/SQ. METER
     Route: 065
     Dates: start: 20200706

REACTIONS (1)
  - Hepatic vein occlusion [Unknown]

NARRATIVE: CASE EVENT DATE: 2021
